FAERS Safety Report 20297740 (Version 1)
Quarter: 2022Q1

REPORT INFORMATION
  Report Type: Other
  Country: US (occurrence: None)
  Receive Date: 20220105
  Receipt Date: 20220105
  Transmission Date: 20220423
  Serious: No
  Sender: FDA-Public Use
  Company Number: US-ROCHE-2732012

PATIENT
  Age: 39 Year
  Sex: Male

DRUGS (10)
  1. ALTEPLASE [Suspect]
     Active Substance: ALTEPLASE
     Indication: COVID-19
     Route: 040
  2. ALTEPLASE [Suspect]
     Active Substance: ALTEPLASE
     Route: 041
  3. ALTEPLASE [Suspect]
     Active Substance: ALTEPLASE
     Route: 040
  4. TOCILIZUMAB [Suspect]
     Active Substance: TOCILIZUMAB
     Indication: COVID-19
     Route: 065
  5. CEFTRIAXONE [Concomitant]
     Active Substance: CEFTRIAXONE
  6. AZITHROMYCIN [Concomitant]
     Active Substance: AZITHROMYCIN
  7. HYDROXYCHLOROQUINE [Concomitant]
     Active Substance: HYDROXYCHLOROQUINE
  8. EPOPROSTENOL [Concomitant]
     Active Substance: EPOPROSTENOL
     Route: 055
  9. NITRIC OXIDE [Concomitant]
     Active Substance: NITRIC OXIDE
     Route: 055
  10. HEPARIN [Concomitant]
     Active Substance: HEPARIN SODIUM
     Dosage: 500 U/H
     Route: 042

REACTIONS (3)
  - Off label use [Unknown]
  - Intentional product use issue [Unknown]
  - No adverse event [Unknown]
